FAERS Safety Report 15085297 (Version 1)
Quarter: 2018Q2

REPORT INFORMATION
  Report Type: Spontaneous
  Country: JP (occurrence: JP)
  Receive Date: 20180628
  Receipt Date: 20180628
  Transmission Date: 20180711
  Serious: Yes (Hospitalization, Other)
  Sender: FDA-Public Use
  Company Number: JP-SHIRE-JP201822595

PATIENT

DRUGS (8)
  1. INTUNIV [Suspect]
     Active Substance: GUANFACINE HYDROCHLORIDE
     Dosage: 4 MG, 1X/DAY:QD
     Route: 048
     Dates: start: 20171030
  2. FLUVOXAMINE MALEATE. [Suspect]
     Active Substance: FLUVOXAMINE MALEATE
     Indication: SOCIAL ANXIETY DISORDER
     Dosage: 100 MG, 1X/DAY:QD
     Route: 065
     Dates: end: 20171122
  3. BROTIZOLAM [Concomitant]
     Active Substance: BROTIZOLAM
     Indication: PRODUCT USED FOR UNKNOWN INDICATION
  4. INTUNIV [Suspect]
     Active Substance: GUANFACINE HYDROCHLORIDE
     Indication: ATTENTION DEFICIT/HYPERACTIVITY DISORDER
     Dosage: 2 MG, 1X/DAY:QD
     Route: 048
     Dates: start: 20171016, end: 20171022
  5. STRATTERA [Concomitant]
     Active Substance: ATOMOXETINE HYDROCHLORIDE
     Indication: ATTENTION DEFICIT/HYPERACTIVITY DISORDER
     Route: 065
  6. FLUVOXAMINE MALEATE. [Suspect]
     Active Substance: FLUVOXAMINE MALEATE
     Indication: AUTISM SPECTRUM DISORDER
  7. INTUNIV [Suspect]
     Active Substance: GUANFACINE HYDROCHLORIDE
     Dosage: 3 MG, 1X/DAY:QD
     Route: 048
     Dates: start: 20171023, end: 20171029
  8. FLUVOXAMINE MALEATE. [Suspect]
     Active Substance: FLUVOXAMINE MALEATE
     Indication: SLEEP DISORDER

REACTIONS (1)
  - Suicide attempt [Recovering/Resolving]

NARRATIVE: CASE EVENT DATE: 20171122
